FAERS Safety Report 4434165-2 (Version None)
Quarter: 2004Q3

REPORT INFORMATION
  Report Type: 
  Country: None (occurrence: None)
  Receive Date: 20040825
  Receipt Date: 20040810
  Transmission Date: 20050211
  Serious: Yes (Hospitalization)
  Sender: FDA-Public Use
  Company Number: 04P-062-0246457-00

PATIENT
  Age: 66 Year
  Sex: Female

DRUGS (4)
  1. HUMIRA [Suspect]
     Dosage: 40 MG, SUBCUTANEOUS
     Route: 058
     Dates: start: 20030901, end: 20031001
  2. ETANERCEPT [Suspect]
     Dosage: 150 MG
     Dates: start: 20031001
  3. LEFLUNOMIDE [Suspect]
     Dosage: 20 MG
  4. METHOTREXATE SODIUM [Concomitant]

REACTIONS (4)
  - BREAST HAEMORRHAGE [None]
  - DIARRHOEA [None]
  - TENDON RUPTURE [None]
  - TREMOR [None]
